FAERS Safety Report 6603807-5 (Version None)
Quarter: 2010Q1

REPORT INFORMATION
  Report Type: 
  Country: None (occurrence: None)
  Receive Date: 20100226
  Receipt Date: 20090206
  Transmission Date: 20100710
  Serious: No
  Sender: FDA-Public Use
  Company Number: A0767464A

PATIENT
  Sex: Female

DRUGS (1)
  1. LAMICTAL CD [Suspect]
     Dosage: 50MG PER DAY
     Route: 048
     Dates: end: 20090204

REACTIONS (4)
  - ECZEMA [None]
  - RASH [None]
  - RASH ERYTHEMATOUS [None]
  - URTICARIA [None]
